FAERS Safety Report 11146622 (Version 1)
Quarter: 2015Q2

REPORT INFORMATION
  Report Type: Spontaneous
  Country: DE (occurrence: DE)
  Receive Date: 20150528
  Receipt Date: 20150528
  Transmission Date: 20150821
  Serious: Yes (Other)
  Sender: FDA-Public Use
  Company Number: GXKR2015DE002531

PATIENT
  Sex: Female

DRUGS (1)
  1. IBUHEXAL AKUT [Suspect]
     Active Substance: IBUPROFEN
     Indication: DYSMENORRHOEA
     Dosage: 1-2 DF ONCE EVERY MONTH
     Route: 048

REACTIONS (1)
  - Infertility [Unknown]
